FAERS Safety Report 10146647 (Version 2)
Quarter: 2014Q2

REPORT INFORMATION
  Report Type: Spontaneous
  Country: AR (occurrence: None)
  Receive Date: 20140429
  Receipt Date: 20140612
  Transmission Date: 20141212
  Serious: Yes (Life-Threatening)
  Sender: FDA-Public Use
  Company Number: 2014AR0187

PATIENT
  Age: 6 Year
  Sex: Male

DRUGS (1)
  1. ORFADIN (NITISINONE) [Suspect]
     Indication: TYROSINAEMIA
     Dosage: 15 MG, 1 IN 1 D
     Route: 048
     Dates: start: 201111, end: 201401

REACTIONS (5)
  - Nervous system disorder [None]
  - Nervous system disorder [None]
  - Treatment noncompliance [None]
  - Hepatic neoplasm [None]
  - Respiratory failure [None]
